FAERS Safety Report 7268837-1 (Version None)
Quarter: 2011Q1

REPORT INFORMATION
  Report Type: 
  Country: None (occurrence: None)
  Receive Date: 20110201
  Receipt Date: 20110127
  Transmission Date: 20110831
  Serious: Yes (Other)
  Sender: FDA-Public Use
  Company Number: US-PFIZER INC-2011020678

PATIENT

DRUGS (4)
  1. NEURONTIN [Suspect]
  2. XANAX [Suspect]
  3. PROTONIX [Suspect]
  4. NORVASC [Suspect]

REACTIONS (2)
  - GASTRIC DISORDER [None]
  - CARDIAC DISORDER [None]
